FAERS Safety Report 6576293-1 (Version None)
Quarter: 2010Q1

REPORT INFORMATION
  Report Type: 
  Country: None (occurrence: None)
  Receive Date: 20100210
  Receipt Date: 20100202
  Transmission Date: 20100710
  Serious: Yes (Hospitalization)
  Sender: FDA-Public Use
  Company Number: US-BIOGENIDEC-2010BI002367

PATIENT
  Age: 61 Year
  Sex: Male

DRUGS (1)
  1. TYSABRI [Suspect]
     Indication: MULTIPLE SCLEROSIS
     Route: 042
     Dates: start: 20080613

REACTIONS (7)
  - ALCOHOL ABUSE [None]
  - BALANCE DISORDER [None]
  - DEPRESSION [None]
  - DIPLOPIA [None]
  - GAIT DISTURBANCE [None]
  - HYPOAESTHESIA [None]
  - SUICIDE ATTEMPT [None]
